FAERS Safety Report 4583744-0 (Version None)
Quarter: 2005Q1

REPORT INFORMATION
  Report Type: 
  Country: None (occurrence: None)
  Receive Date: 20050211
  Receipt Date: 20050204
  Transmission Date: 20050727
  Serious: Yes (Disabling)
  Sender: FDA-Public Use
  Company Number: TPA2005A00002

PATIENT
  Age: 54 Year
  Sex: Female
  Weight: 81.6475 kg

DRUGS (11)
  1. ACTOS [Suspect]
     Indication: DIABETES MELLITUS NON-INSULIN-DEPENDENT
     Dosage: SEE IMAGE
     Route: 048
     Dates: start: 20000329, end: 20011102
  2. ACTOS [Suspect]
     Indication: DIABETES MELLITUS NON-INSULIN-DEPENDENT
     Dosage: SEE IMAGE
     Route: 048
     Dates: start: 20011102
  3. COUMADIN [Concomitant]
  4. LIPITOR [Concomitant]
  5. PRINIVIL [Concomitant]
  6. HUMULIN 70/30 [Concomitant]
  7. LANTUS INSULIN (INSULIN GLARGINE) [Concomitant]
  8. CARDIZEM [Concomitant]
  9. ZANTAC [Concomitant]
  10. LASIX [Concomitant]
  11. SLOW-K [Concomitant]

REACTIONS (4)
  - CARPAL TUNNEL SYNDROME [None]
  - HYPOAESTHESIA [None]
  - POLYNEUROPATHY [None]
  - THERAPY NON-RESPONDER [None]
